FAERS Safety Report 20058780 (Version 1)
Quarter: 2021Q4

REPORT INFORMATION
  Report Type: Spontaneous
  Country: US (occurrence: None)
  Receive Date: 20211111
  Receipt Date: 20211111
  Transmission Date: 20220303
  Serious: No
  Sender: FDA-Public Use
  Company Number: None

PATIENT
  Sex: Female

DRUGS (9)
  1. HUMIRA [Suspect]
     Active Substance: ADALIMUMAB
     Indication: Rheumatoid arthritis
     Dosage: OTHER FREQUENCY : EVERY 2 WEEKS;?
     Route: 060
     Dates: start: 20180512
  2. METHOTREXATE [Concomitant]
     Active Substance: METHOTREXATE
     Dates: start: 20211020
  3. LORAZEPAM TAB 1MG [Concomitant]
     Dates: start: 20211013
  4. ATORVASTATIN [Concomitant]
     Active Substance: ATORVASTATIN
     Dates: start: 20210408
  5. FLUTICASONE [Concomitant]
     Active Substance: FLUTICASONE
  6. TIZANIDINE TAB 4MG [Concomitant]
     Dates: start: 20211101
  7. FOLIC ACID TAB 1MG [Concomitant]
     Dates: start: 20211101
  8. HYDROCO/APAP TAB 7.5-325 [Concomitant]
     Dates: start: 20211023
  9. FUROSEMIDE TAB 20MG [Concomitant]
     Dates: start: 20210527

REACTIONS (2)
  - Therapy interrupted [None]
  - Hospitalisation [None]
